FAERS Safety Report 8668948 (Version 2)
Quarter: 2012Q4

REPORT INFORMATION
  Report Type: 
  Country: JP (occurrence: JP)
  Receive Date: 20120717
  Receipt Date: 20120831
  Transmission Date: 20130627
  Serious: Yes (Death, Hospitalization)
  Sender: FDA-Public Use
  Company Number: PHHY2012JP060443

PATIENT
  Age: 15 Year
  Sex: Male

DRUGS (4)
  1. FLUVOXAMINE [Suspect]
     Indication: SOCIAL PHOBIA
     Dosage: 15 mg, UNK
     Route: 048
     Dates: start: 2009
  2. FLUVOXAMINE [Suspect]
     Dosage: 120 DF, UNK
     Route: 048
  3. TANDOSPIRONE [Suspect]
     Indication: SOCIAL PHOBIA
     Dosage: 60 mg, UNK
     Route: 048
     Dates: start: 2009
  4. TANDOSPIRONE [Suspect]
     Dosage: 142 DF, UNK
     Route: 048

REACTIONS (21)
  - Serotonin syndrome [Fatal]
  - Loss of consciousness [Fatal]
  - Unresponsive to stimuli [Fatal]
  - Heart rate increased [Fatal]
  - Convulsion [Fatal]
  - Hypotension [Fatal]
  - Pupillary reflex impaired [Fatal]
  - Brain oedema [Fatal]
  - Body temperature increased [Fatal]
  - Hyperhidrosis [Fatal]
  - Muscle rigidity [Fatal]
  - Circulatory collapse [Fatal]
  - Coma [Fatal]
  - Metabolic acidosis [Fatal]
  - Disseminated intravascular coagulation [Unknown]
  - Mouth haemorrhage [Unknown]
  - Renal failure acute [Unknown]
  - Cardio-respiratory arrest [Recovered/Resolved]
  - Inflammation [Unknown]
  - Rhabdomyolysis [Unknown]
  - Intentional overdose [Unknown]
